FAERS Safety Report 15334846 (Version 1)
Quarter: 2018Q4

REPORT INFORMATION
  Report Type: Spontaneous
  Country: IT (occurrence: IT)
  Receive Date: 20180830
  Receipt Date: 20180830
  Transmission Date: 20190204
  Serious: Yes (Other)
  Sender: FDA-Public Use
  Company Number: IT-TEVA-2018-IT-949962

PATIENT
  Age: 69 Year
  Sex: Male
  Weight: 78 kg

DRUGS (3)
  1. AZITHROMYCIN ANHYDROUS. [Suspect]
     Active Substance: AZITHROMYCIN ANHYDROUS
     Indication: BRONCHITIS
     Route: 048
  2. MOMENXSIN 200 MG/30 MG COMPRESSE RIVESTITE CON FILM [Suspect]
     Active Substance: IBUPROFEN\PSEUDOEPHEDRINE HYDROCHLORIDE
     Indication: HEADACHE
  3. AMOXICILLINA E ACIDO CLAVULANICO HEXAL AG [Suspect]
     Active Substance: AMOXICILLIN\CLAVULANIC ACID
     Indication: BRONCHITIS
     Route: 048

REACTIONS (4)
  - Rash pustular [Not Recovered/Not Resolved]
  - Acne [Not Recovered/Not Resolved]
  - Pemphigoid [Not Recovered/Not Resolved]
  - Pruritus [Not Recovered/Not Resolved]

NARRATIVE: CASE EVENT DATE: 20171117
